FAERS Safety Report 14804185 (Version 1)
Quarter: 2018Q2

REPORT INFORMATION
  Report Type: Other
  Country: CA (occurrence: CA)
  Receive Date: 20180425
  Receipt Date: 20180425
  Transmission Date: 20180711
  Serious: Yes (Hospitalization, Other)
  Sender: FDA-Public Use
  Company Number: CA-APOTEX-2018AP010567

PATIENT
  Age: 63 Year
  Sex: Male

DRUGS (1)
  1. FENTANYL. [Suspect]
     Active Substance: FENTANYL
     Indication: PRODUCT USED FOR UNKNOWN INDICATION
     Dosage: 12 ?G, ONE EVERY 72 HOURS
     Route: 062

REACTIONS (4)
  - Syncope [Recovered/Resolved]
  - Renal impairment [Recovered/Resolved]
  - Unresponsive to stimuli [Recovered/Resolved]
  - Altered state of consciousness [Recovered/Resolved]
